FAERS Safety Report 4676992-2 (Version None)
Quarter: 2005Q2

REPORT INFORMATION
  Report Type: 
  Country: None (occurrence: None)
  Receive Date: 20050526
  Receipt Date: 20050516
  Transmission Date: 20051028
  Serious: Yes (Other)
  Sender: FDA-Public Use
  Company Number: 2005075571

PATIENT
  Age: 41 Year
  Sex: Female

DRUGS (4)
  1. PHENYTOIN [Suspect]
     Indication: EPILEPSY
     Dosage: 280 MG
  2. CLOBAZAM (CLOBAZAM) [Suspect]
     Indication: EPILEPSY
     Dosage: 8 MG
  3. VALPROATE SDOIUM (VALPROATE SODIUM) [Concomitant]
  4. ZONISAMIDE (ZONISAMIDE) [Concomitant]

REACTIONS (5)
  - COORDINATION ABNORMAL [None]
  - DRUG INTERACTION [None]
  - DRUG TOXICITY [None]
  - GAIT DISTURBANCE [None]
  - SOMNOLENCE [None]
